FAERS Safety Report 7532196-7 (Version None)
Quarter: 2011Q2

REPORT INFORMATION
  Report Type: 
  Country: None (occurrence: None)
  Receive Date: 20110608
  Receipt Date: 20110531
  Transmission Date: 20111010
  Serious: Yes (Other)
  Sender: FDA-Public Use
  Company Number: DE-ABBOTT-11P-062-0730604-00

PATIENT
  Sex: Male

DRUGS (3)
  1. HUMIRA [Suspect]
     Indication: FISTULA
  2. HUMIRA [Suspect]
     Indication: SUBCUTANEOUS ABSCESS
     Dates: start: 20110530
  3. HUMIRA [Suspect]
     Indication: CROHN'S DISEASE
     Dates: start: 20110317, end: 20110530

REACTIONS (2)
  - FISTULA [None]
  - SUBCUTANEOUS ABSCESS [None]
